FAERS Safety Report 9628632 (Version 1)
Quarter: 2013Q4

REPORT INFORMATION
  Report Type: Spontaneous
  Country: BR (occurrence: BR)
  Receive Date: 20131017
  Receipt Date: 20131017
  Transmission Date: 20140711
  Serious: Yes (Other)
  Sender: FDA-Public Use
  Company Number: BR-SA-2013SA102485

PATIENT
  Age: 57 Year
  Sex: Female
  Weight: 92 kg

DRUGS (17)
  1. LANTUS SOLOSTAR [Suspect]
     Indication: TYPE 2 DIABETES MELLITUS
     Route: 058
     Dates: start: 2003
  2. SOLOSTAR [Concomitant]
     Indication: DEVICE THERAPY
  3. DEVICE NOS [Concomitant]
     Indication: DEVICE THERAPY
     Route: 058
  4. DEPURA [Concomitant]
     Indication: VITAMIN SUPPLEMENTATION
     Route: 048
     Dates: start: 2013
  5. MAGNE B6 [Concomitant]
     Indication: VITAMIN SUPPLEMENTATION
     Route: 048
     Dates: start: 2013
  6. LOSARTAN POTASSIUM [Concomitant]
     Indication: BLOOD PRESSURE
     Dosage: STRENGTH: 100 MG
     Route: 048
     Dates: start: 2009
  7. FLUOXETINE [Concomitant]
     Indication: ANXIETY
     Route: 048
     Dates: start: 2010
  8. ROSUVASTATIN CALCIUM [Concomitant]
     Indication: CARDIAC DISORDER
     Dosage: STRENGTH: 20 MG
     Route: 048
     Dates: start: 2007
  9. AMIODARONE HYDROCHLORIDE [Concomitant]
     Indication: CARDIAC DISORDER
     Dosage: STRENGTH: 200 MG
     Route: 048
     Dates: start: 2012
  10. PANTOPRAZOLE [Concomitant]
     Indication: GASTRIC DISORDER
     Dosage: STRENGTH: 40 MG
     Route: 048
     Dates: start: 2003
  11. LASIX [Concomitant]
     Indication: RENAL DISORDER
     Dosage: STRENGTH: 40 MG
     Route: 048
     Dates: start: 2011
  12. PLAVIX [Concomitant]
     Indication: ANTICOAGULANT THERAPY
     Dosage: STRENGTH: 75 MG
     Route: 048
     Dates: start: 201210
  13. CARVEDILOL [Concomitant]
     Indication: CARDIAC DISORDER
     Dosage: STRENGTH: 25 MG
     Route: 048
     Dates: start: 201210
  14. GABAPENTIN [Concomitant]
     Indication: DIABETIC NEUROPATHY
     Dosage: STRENGTH: 400 MG
     Route: 048
     Dates: start: 1998
  15. GALVUS [Concomitant]
     Indication: TYPE 2 DIABETES MELLITUS
     Dosage: STRENGTH: 50 MG
     Route: 048
     Dates: start: 2010
  16. ADALAT OROS [Concomitant]
     Indication: CARDIAC DISORDER
     Dosage: STRENGTH: 30 MG
     Route: 048
     Dates: start: 201210
  17. HUMALOG [Concomitant]
     Indication: TYPE 2 DIABETES MELLITUS
     Dosage: DOSE:IU ACCORDING TO THE BLOOD GLUCOSE VALUE
     Route: 058
     Dates: start: 2005

REACTIONS (10)
  - Injury [Recovered/Resolved]
  - Infarction [Recovered/Resolved]
  - Tachycardia [Unknown]
  - Malaise [Unknown]
  - Dizziness [Unknown]
  - Pain in jaw [Unknown]
  - Erysipelas [Not Recovered/Not Resolved]
  - Pain [Unknown]
  - Burning sensation [Unknown]
  - Renal disorder [Not Recovered/Not Resolved]
